FAERS Safety Report 23571195 (Version 1)
Quarter: 2024Q1

REPORT INFORMATION
  Report Type: Spontaneous
  Country: US (occurrence: None)
  Receive Date: 20240226
  Receipt Date: 20240226
  Transmission Date: 20240409
  Serious: Yes (Hospitalization)
  Sender: FDA-Public Use
  Company Number: None

PATIENT
  Age: 0 Year
  Sex: Female

DRUGS (1)
  1. TAVNEOS [Suspect]
     Active Substance: AVACOPAN
     Indication: Thrombotic microangiopathy
     Dosage: FREQUENCY : TWICE A DAY;?

REACTIONS (1)
  - Hospitalisation [None]

NARRATIVE: CASE EVENT DATE: 19501113
